FAERS Safety Report 4914002-X (Version None)
Quarter: 2006Q1

REPORT INFORMATION
  Report Type: 
  Country: None (occurrence: None)
  Receive Date: 20060210
  Receipt Date: 20060127
  Transmission Date: 20060701
  Serious: Yes (Death)
  Sender: FDA-Public Use
  Company Number: L05-USA-03935-58

PATIENT
  Age: 37 Year
  Sex: Male

DRUGS (7)
  1. PROPRANOLOL [Suspect]
  2. DARVOCET-N 50 [Suspect]
  3. QUETIAPINE FUMARATE [Suspect]
  4. TIAGABINE HCL [Suspect]
  5. ALPRAZOLAM [Suspect]
  6. VALPROIC ACID [Suspect]
  7. ZIPRASIDONE HCL [Suspect]

REACTIONS (14)
  - ALANINE AMINOTRANSFERASE INCREASED [None]
  - ASPARTATE AMINOTRANSFERASE INCREASED [None]
  - BLOOD CALCIUM DECREASED [None]
  - BLOOD PH DECREASED [None]
  - BLOOD PRESSURE DECREASED [None]
  - BUNDLE BRANCH BLOCK [None]
  - CARDIAC ARREST [None]
  - CARDIOVASCULAR DECONDITIONING [None]
  - CARDIOVASCULAR DISORDER [None]
  - COMPLETED SUICIDE [None]
  - DEPRESSED LEVEL OF CONSCIOUSNESS [None]
  - ELECTROCARDIOGRAM QRS COMPLEX PROLONGED [None]
  - PCO2 INCREASED [None]
  - PO2 INCREASED [None]
